FAERS Safety Report 23800861 (Version 1)
Quarter: 2024Q2

REPORT INFORMATION
  Report Type: Report from Study
  Country: US (occurrence: US)
  Receive Date: 20240430
  Receipt Date: 20240430
  Transmission Date: 20240716
  Serious: Yes (Life-Threatening, Other)
  Sender: FDA-Public Use
  Company Number: US-Korea IPSEN-2024-01989

PATIENT
  Age: 13 Year
  Sex: Female
  Weight: 49 kg

DRUGS (1)
  1. TAZEMETOSTAT HYDROBROMIDE [Suspect]
     Active Substance: TAZEMETOSTAT HYDROBROMIDE
     Dosage: 520 MG/M2 TWICE A DAY
     Route: 048
     Dates: start: 20211119, end: 20230418

REACTIONS (5)
  - Mediastinal mass [Recovered/Resolved with Sequelae]
  - Precursor T-lymphoblastic lymphoma/leukaemia [Recovered/Resolved with Sequelae]
  - Off label use [Unknown]
  - Off label use [Unknown]
  - Off label use [Unknown]

NARRATIVE: CASE EVENT DATE: 20230418
